FAERS Safety Report 21074679 (Version 1)
Quarter: 2022Q3

REPORT INFORMATION
  Report Type: Report from Study
  Country: AR (occurrence: AR)
  Receive Date: 20220713
  Receipt Date: 20220713
  Transmission Date: 20221027
  Serious: Yes (Life-Threatening, Hospitalization, Other)
  Sender: FDA-Public Use
  Company Number: AR-BRISTOL-MYERS SQUIBB COMPANY-2022-069297

PATIENT
  Age: 61 Year
  Sex: Female

DRUGS (1)
  1. ELIQUIS [Suspect]
     Active Substance: APIXABAN
     Indication: Product used for unknown indication
     Route: 065
     Dates: start: 20190610

REACTIONS (4)
  - Hospitalisation [Unknown]
  - Visual impairment [Unknown]
  - Hypoacusis [Unknown]
  - Cervix neoplasm [Recovering/Resolving]
